FAERS Safety Report 22521810 (Version 1)
Quarter: 2023Q2

REPORT INFORMATION
  Report Type: Spontaneous
  Country: RO (occurrence: RO)
  Receive Date: 20230605
  Receipt Date: 20230605
  Transmission Date: 20230721
  Serious: Yes (Hospitalization, Other)
  Sender: FDA-Public Use
  Company Number: RO-002147023-NVSC2023RO122956

PATIENT
  Age: 70 Year
  Sex: Male
  Weight: 60 kg

DRUGS (4)
  1. ZIEXTENZO [Suspect]
     Active Substance: PEGFILGRASTIM-BMEZ
     Indication: Febrile neutropenia
     Dosage: 6 MG, Q2W
     Route: 058
     Dates: start: 20221118
  2. IRINOTECAN [Concomitant]
     Active Substance: IRINOTECAN
     Indication: Palliative care
     Dosage: UNK, VIAL
     Route: 042
     Dates: start: 20221115
  3. OXALIPLATIN [Concomitant]
     Active Substance: OXALIPLATIN
     Indication: Palliative care
     Dosage: UNK, Q2W (VIAL)
     Route: 042
     Dates: start: 20221115
  4. FLUOROURACIL [Concomitant]
     Active Substance: FLUOROURACIL
     Indication: Palliative care
     Dosage: UNK, Q2W, VIAL
     Route: 042
     Dates: start: 20221115

REACTIONS (4)
  - Enterocolitis [Unknown]
  - Thrombocytopenia [Recovered/Resolved]
  - Thrombocytopenia [Recovered/Resolved]
  - Thrombocytopenia [Recovered/Resolved]

NARRATIVE: CASE EVENT DATE: 20221120
